FAERS Safety Report 21727435 (Version 1)
Quarter: 2022Q4

REPORT INFORMATION
  Report Type: Report from Study
  Country: US (occurrence: US)
  Receive Date: 20221214
  Receipt Date: 20221214
  Transmission Date: 20230113
  Serious: Yes (Other)
  Sender: FDA-Public Use
  Company Number: US-SA-2022SA499296

PATIENT
  Sex: Female

DRUGS (14)
  1. ANTI-THYMOCYTE GLOBULIN (RABBIT) NOS [Suspect]
     Active Substance: LAPINE T-LYMPHOCYTE IMMUNE GLOBULIN
     Indication: Organ transplant
     Dosage: 4.5 MG/KG (3 DIVIDED DOSES AT THE TIME OF UTX AND UNTIL POSTTRANSPLANT DAY 5)
  2. ANTI-THYMOCYTE GLOBULIN (RABBIT) NOS [Suspect]
     Active Substance: LAPINE T-LYMPHOCYTE IMMUNE GLOBULIN
     Indication: Immunosuppressant drug therapy
  3. METHYLPREDNISOLONE [Suspect]
     Active Substance: METHYLPREDNISOLONE
     Indication: Organ transplant
     Dosage: 1000 MG AT THE TIME OF UTX
  4. METHYLPREDNISOLONE [Suspect]
     Active Substance: METHYLPREDNISOLONE
     Indication: Immunosuppressant drug therapy
  5. PREDNISONE [Suspect]
     Active Substance: PREDNISONE
     Indication: Organ transplant
     Dosage: 15 MG, QD
  6. PREDNISONE [Suspect]
     Active Substance: PREDNISONE
     Indication: Immunosuppressant drug therapy
     Dosage: 2.5 MG/D WEEKLY UNITL IT WAS DISCONTINUED ON POSTTRANSPLANT DAY 42
  7. TACROLIMUS [Suspect]
     Active Substance: TACROLIMUS
     Indication: Organ transplant
     Dosage: 0.5 MG/KG, Q12H (IBW INITIATION DOSE) (INITIAL REGIMEN)
     Route: 048
  8. TACROLIMUS [Suspect]
     Active Substance: TACROLIMUS
     Indication: Immunosuppressant drug therapy
     Dosage: 0.5 MG/KG, Q12H (3 MONTHS POST TRANSPLANT REGIMEN)
     Route: 048
  9. TACROLIMUS [Suspect]
     Active Substance: TACROLIMUS
     Dosage: 0.5 MG/KG, Q12H (1 YEAR POSTTRANSPLANT REGIMEN)
  10. MYCOPHENOLIC ACID [Suspect]
     Active Substance: MYCOPHENOLIC ACID
     Indication: Organ transplant
     Dosage: 3 MONTHS POST TRANSPLANT REGIMEN
  11. MYCOPHENOLIC ACID [Suspect]
     Active Substance: MYCOPHENOLIC ACID
     Indication: Immunosuppressant drug therapy
     Dosage: 1 YEAR POST TRANSPLANT REGIMEN)
  12. AZATHIOPRINE [Suspect]
     Active Substance: AZATHIOPRINE
     Indication: Organ transplant
     Dosage: 1 MG/KG (APPROXIMATELY 50?75 MG) 1 YEAR POST TRANSPLANT
  13. AZATHIOPRINE [Suspect]
     Active Substance: AZATHIOPRINE
     Indication: Immunosuppressant drug therapy
  14. ASPIRIN [Concomitant]
     Active Substance: ASPIRIN
     Dosage: 81 MG, QD

REACTIONS (2)
  - Nephropathy toxic [Unknown]
  - Urinary tract infection [Unknown]
